FAERS Safety Report 15419892 (Version 1)
Quarter: 2018Q3

REPORT INFORMATION
  Report Type: Report from Study
  Country: DE (occurrence: DE)
  Receive Date: 20180924
  Receipt Date: 20180924
  Transmission Date: 20181010
  Serious: Yes (Other)
  Sender: FDA-Public Use
  Company Number: DE-PFIZER INC-2018379661

PATIENT
  Age: 39 Year
  Sex: Female
  Weight: 62 kg

DRUGS (11)
  1. PACLITAXEL. [Suspect]
     Active Substance: PACLITAXEL
     Dosage: UNK
     Dates: start: 20120213
  2. AFINITOR [Suspect]
     Active Substance: EVEROLIMUS
  3. BEVACIZUMAB. [Suspect]
     Active Substance: BEVACIZUMAB
     Indication: BREAST CANCER
     Dosage: 1000 MG, UNK
     Route: 042
     Dates: start: 20111121, end: 20120319
  4. PACLITAXEL. [Suspect]
     Active Substance: PACLITAXEL
     Dosage: UNK
     Dates: start: 20120319
  5. PACLITAXEL. [Suspect]
     Active Substance: PACLITAXEL
     Dosage: 135 MG/M2, UNK
     Route: 065
     Dates: start: 20111212
  6. PACLITAXEL. [Suspect]
     Active Substance: PACLITAXEL
     Dosage: UNK
     Dates: start: 20120102
  7. PACLITAXEL. [Suspect]
     Active Substance: PACLITAXEL
     Indication: BREAST CANCER
     Dosage: 175 MG/M2, UNK
     Dates: start: 20111121
  8. PACLITAXEL. [Suspect]
     Active Substance: PACLITAXEL
     Dosage: UNK
     Dates: start: 20120123
  9. BISOPROLOL [Concomitant]
     Active Substance: BISOPROLOL
     Indication: HYPERTENSION
     Route: 048
     Dates: start: 2009
  10. BISOPROLOL [Concomitant]
     Active Substance: BISOPROLOL
     Dosage: UNK
     Route: 065
     Dates: start: 20060101
  11. L?THYROXIN [Concomitant]
     Active Substance: LEVOTHYROXINE SODIUM
     Indication: HYPOTHYROIDISM
     Dosage: 75 UG, UNK
     Route: 048

REACTIONS (7)
  - Bone pain [Not Recovered/Not Resolved]
  - Neutropenia [Recovered/Resolved]
  - Anaemia [Recovered/Resolved]
  - Dyspnoea [Recovered/Resolved]
  - Osteonecrosis of jaw [Recovered/Resolved]
  - Neutropenia [Not Recovered/Not Resolved]
  - Dizziness [Recovered/Resolved]

NARRATIVE: CASE EVENT DATE: 20111125
